FAERS Safety Report 8208996-7 (Version None)
Quarter: 2012Q1

REPORT INFORMATION
  Report Type: 
  Country: None (occurrence: None)
  Receive Date: 20120314
  Receipt Date: 20120302
  Transmission Date: 20120608
  Serious: Yes (Hospitalization)
  Sender: FDA-Public Use
  Company Number: US-ACTELION-A-US2012-59767

PATIENT

DRUGS (7)
  1. EPOPROSTENOL SODIUM [Suspect]
     Dosage: 14 NG/KG, PER MIN
     Route: 042
     Dates: start: 20110113
  2. EPOPROSTENOL SODIUM [Suspect]
     Dosage: 21 NG/KG, PER MIN
     Route: 042
     Dates: start: 20110113
  3. ASPIRIN [Concomitant]
  4. OXYGEN [Concomitant]
  5. COUMADIN [Concomitant]
  6. EPOPROSTENOL SODIUM [Suspect]
     Indication: PULMONARY ARTERIAL HYPERTENSION
     Dosage: 13 NG/KG, UNK
     Route: 042
     Dates: start: 20120111
  7. PLAVIX [Concomitant]

REACTIONS (13)
  - DRUG ADMINISTRATION ERROR [None]
  - HEADACHE [None]
  - FLUSHING [None]
  - LOSS OF CONSCIOUSNESS [None]
  - DYSPNOEA [None]
  - CARDIAC FAILURE CONGESTIVE [None]
  - SYNCOPE [None]
  - TREMOR [None]
  - BLOOD PRESSURE DECREASED [None]
  - FEELING ABNORMAL [None]
  - MALAISE [None]
  - DIZZINESS [None]
  - PULMONARY ARTERIAL HYPERTENSION [None]
